FAERS Safety Report 19065360 (Version 1)
Quarter: 2021Q1

REPORT INFORMATION
  Report Type: Spontaneous
  Country: GB (occurrence: GB)
  Receive Date: 20210327
  Receipt Date: 20210327
  Transmission Date: 20210420
  Serious: Yes (Other)
  Sender: FDA-Public Use
  Company Number: GB-ASTRAZENECA-2021A136485

PATIENT
  Age: 46 Year
  Sex: Male

DRUGS (6)
  1. ASTRAZENECA COVID?19 VACCINE [Suspect]
     Active Substance: AZD-1222
     Indication: PRODUCT USED FOR UNKNOWN INDICATION
     Route: 065
     Dates: start: 20210310, end: 20210310
  2. FLUOXETINE [Concomitant]
     Active Substance: FLUOXETINE HYDROCHLORIDE
     Indication: DEPRESSION
     Route: 065
     Dates: start: 20190501
  3. ATORVASTATIN [Concomitant]
     Active Substance: ATORVASTATIN
     Indication: BLOOD CHOLESTEROL INCREASED
     Route: 065
     Dates: start: 20170301
  4. RAMIPRIL. [Concomitant]
     Active Substance: RAMIPRIL
     Indication: HYPERTENSION
     Route: 065
     Dates: start: 20170301
  5. QUETIAPINE. [Suspect]
     Active Substance: QUETIAPINE
     Indication: ATTENTION DEFICIT HYPERACTIVITY DISORDER
     Route: 065
     Dates: start: 20190501
  6. LISDEXAMFETAMINE [Concomitant]
     Active Substance: LISDEXAMFETAMINE
     Indication: ATTENTION DEFICIT HYPERACTIVITY DISORDER
     Route: 065
     Dates: start: 20190501

REACTIONS (3)
  - Fatigue [Unknown]
  - Drug interaction [Unknown]
  - Insomnia [Unknown]
